FAERS Safety Report 24687345 (Version 1)
Quarter: 2024Q4

REPORT INFORMATION
  Report Type: Spontaneous
  Country: FI (occurrence: FI)
  Receive Date: 20241202
  Receipt Date: 20241202
  Transmission Date: 20250114
  Serious: Yes (Other)
  Sender: FRESENIUS KABI
  Company Number: FI-009507513-2411FIN005491

PATIENT
  Age: 60 Year
  Sex: Female
  Weight: 95 kg

DRUGS (26)
  1. PACLITAXEL [Suspect]
     Active Substance: PACLITAXEL
     Indication: Triple negative breast cancer
     Dosage: RECEIVED 4 DOSES OF NEOADJUVANT THERAPY
     Dates: start: 20240219, end: 20240219
  2. PACLITAXEL [Suspect]
     Active Substance: PACLITAXEL
     Dosage: UNK
     Dates: start: 20240311, end: 20240311
  3. PACLITAXEL [Suspect]
     Active Substance: PACLITAXEL
     Dosage: UNK
     Dates: start: 20240402, end: 20240402
  4. PACLITAXEL [Suspect]
     Active Substance: PACLITAXEL
     Dosage: UNK
     Dates: start: 20240422, end: 20240422
  5. PEMBROLIZUMAB [Suspect]
     Active Substance: PEMBROLIZUMAB
     Indication: Triple negative breast cancer
     Dosage: RECEIVED 8 DOSES OF NEOADJUVANT THERAPY?FOA - SOLUTION FOR INJECTION
     Dates: start: 20240219, end: 20240219
  6. PEMBROLIZUMAB [Suspect]
     Active Substance: PEMBROLIZUMAB
     Dosage: UNK?FOA - SOLUTION FOR INJECTION
     Dates: start: 20240311, end: 20240311
  7. PEMBROLIZUMAB [Suspect]
     Active Substance: PEMBROLIZUMAB
     Dosage: UNK?FOA - SOLUTION FOR INJECTION
     Dates: start: 20240402, end: 20240402
  8. PEMBROLIZUMAB [Suspect]
     Active Substance: PEMBROLIZUMAB
     Dosage: UNK?FOA - SOLUTION FOR INJECTION
     Dates: start: 20240422, end: 20240422
  9. PEMBROLIZUMAB [Suspect]
     Active Substance: PEMBROLIZUMAB
     Dosage: UNK?FOA - SOLUTION FOR INJECTION
     Dates: start: 20240513, end: 20240513
  10. PEMBROLIZUMAB [Suspect]
     Active Substance: PEMBROLIZUMAB
     Dosage: UNK?FOA - SOLUTION FOR INJECTION
     Dates: start: 20240603, end: 20240603
  11. PEMBROLIZUMAB [Suspect]
     Active Substance: PEMBROLIZUMAB
     Dosage: UNK?FOA - SOLUTION FOR INJECTION
     Dates: start: 20240625, end: 20240625
  12. PEMBROLIZUMAB [Suspect]
     Active Substance: PEMBROLIZUMAB
     Dosage: UNK?FOA - SOLUTION FOR INJECTION
     Dates: start: 20240719, end: 20240719
  13. PEMBROLIZUMAB [Suspect]
     Active Substance: PEMBROLIZUMAB
     Dosage: RECEIVED 4 DOSES OF ADJUVANT THERAPY?FOA - SOLUTION FOR INJECTION
     Dates: start: 20240920
  14. CARBOPLATIN [Suspect]
     Active Substance: CARBOPLATIN
     Indication: Triple negative breast cancer
     Dosage: RECEIVED 4 DOSES OF NEOADJUVANT THERAPY
     Dates: start: 20240219, end: 20240219
  15. CARBOPLATIN [Suspect]
     Active Substance: CARBOPLATIN
     Dosage: UNK
     Dates: start: 20240311, end: 20240311
  16. CARBOPLATIN [Suspect]
     Active Substance: CARBOPLATIN
     Dosage: UNK
     Dates: start: 20240402, end: 20240402
  17. CARBOPLATIN [Suspect]
     Active Substance: CARBOPLATIN
     Dosage: UNK
     Dates: start: 20240422, end: 20240422
  18. DOXORUBICIN [Suspect]
     Active Substance: DOXORUBICIN
     Indication: Triple negative breast cancer
     Dosage: RECEIVED 4 DOSES OF NEOADJUVANT THERAPY
     Dates: end: 20240513
  19. DOXORUBICIN [Suspect]
     Active Substance: DOXORUBICIN
     Dosage: UNK
     Dates: start: 20240603, end: 20240603
  20. DOXORUBICIN [Suspect]
     Active Substance: DOXORUBICIN
     Dosage: UNK
     Dates: start: 20240625, end: 20240625
  21. DOXORUBICIN [Suspect]
     Active Substance: DOXORUBICIN
     Dosage: UNK
     Dates: start: 20240719, end: 20240719
  22. CYCLOPHOSPHAMIDE [Suspect]
     Active Substance: CYCLOPHOSPHAMIDE
     Indication: Triple negative breast cancer
     Dosage: RECEIVED 4 DOSES OF NEOADJUVANT THERAPY
     Dates: end: 20240513
  23. CYCLOPHOSPHAMIDE [Suspect]
     Active Substance: CYCLOPHOSPHAMIDE
     Dosage: UNK
     Dates: start: 20240603, end: 20240603
  24. CYCLOPHOSPHAMIDE [Suspect]
     Active Substance: CYCLOPHOSPHAMIDE
     Dosage: UNK
     Dates: start: 20240625, end: 20240625
  25. CYCLOPHOSPHAMIDE [Suspect]
     Active Substance: CYCLOPHOSPHAMIDE
     Dosage: UNK
     Dates: start: 20240719, end: 20240719
  26. APIXABAN [Concomitant]
     Active Substance: APIXABAN
     Indication: Product used for unknown indication

REACTIONS (13)
  - Arrhythmia [Recovering/Resolving]
  - Hypokalaemia [Unknown]
  - Inappropriate schedule of product administration [Unknown]
  - Inappropriate schedule of product administration [Unknown]
  - Inappropriate schedule of product administration [Unknown]
  - Troponin abnormal [Unknown]
  - Prohormone brain natriuretic peptide abnormal [Unknown]
  - Ejection fraction abnormal [Unknown]
  - Inappropriate schedule of product administration [Unknown]
  - Breast radial scar [Unknown]
  - Breast disorder [Unknown]
  - Abdominal pain [Recovering/Resolving]
  - Hypoacusis [Recovering/Resolving]

NARRATIVE: CASE EVENT DATE: 20240402
